FAERS Safety Report 8796696 (Version 1)
Quarter: 2012Q4

REPORT INFORMATION
  Report Type: 
  Country: GB (occurrence: GB)
  Receive Date: 20120919
  Receipt Date: 20120919
  Transmission Date: 20130627
  Serious: Yes (Life-Threatening)
  Sender: FDA-Public Use
  Company Number: GB-PERRIGO-12GB008021

PATIENT
  Age: 26 Year
  Sex: Female

DRUGS (1)
  1. IBUPROFEN 16028/0013 200 MG [Suspect]
     Indication: PRODUCT USED FOR UNKNOWN INDICATION
     Dosage: UNK
     Route: 048
     Dates: start: 20120830

REACTIONS (1)
  - Pharyngeal oedema [Recovered/Resolved]
